FAERS Safety Report 9738429 (Version 1)
Quarter: 2013Q4

REPORT INFORMATION
  Report Type: Spontaneous
  Country: FR (occurrence: FR)
  Receive Date: 20131208
  Receipt Date: 20131208
  Transmission Date: 20140711
  Serious: Yes (Death, Hospitalization)
  Sender: FDA-Public Use
  Company Number: FR-ROCHE-1315794

PATIENT
  Age: 89 Year
  Sex: Female

DRUGS (5)
  1. LUCENTIS [Suspect]
     Indication: PRODUCT USED FOR UNKNOWN INDICATION
     Route: 050
  2. ATERAX [Concomitant]
     Route: 065
     Dates: start: 20131031, end: 20131031
  3. CATAPRESSAN [Concomitant]
     Route: 065
     Dates: start: 20131031, end: 20131031
  4. CALTRATE [Concomitant]
  5. VITAMIN D3 [Concomitant]

REACTIONS (2)
  - Cerebral haemorrhage [Fatal]
  - Hypertensive crisis [Fatal]
